FAERS Safety Report 6010152-8 (Version None)
Quarter: 2008Q4

REPORT INFORMATION
  Report Type: 
  Country: None (occurrence: None)
  Receive Date: 20081216
  Receipt Date: 20081202
  Transmission Date: 20090506
  Serious: Yes (Death)
  Sender: FDA-Public Use
  Company Number: MPS1-1000134

PATIENT
  Age: 7 Year
  Sex: Female
  Weight: 14.5 kg

DRUGS (3)
  1. ALDURAZYME [Suspect]
     Indication: MUCOPOLYSACCHARIDOSIS I
     Dosage: 0.58 MG/KG, 1X/W, INTRAVENOUS
     Route: 042
     Dates: start: 20070731, end: 20081114
  2. ENALAPRIL MALEATE AND HYDROCHLOROTHIAZIDE [Concomitant]
  3. FUROSEMIDE [Concomitant]

REACTIONS (20)
  - ACUTE RESPIRATORY FAILURE [None]
  - ANAPHYLACTIC REACTION [None]
  - BLOOD PH DECREASED [None]
  - BLOOD UREA INCREASED [None]
  - COUGH [None]
  - CYANOSIS [None]
  - HAEMATOCRIT INCREASED [None]
  - HAEMOGLOBIN INCREASED [None]
  - HEPATOMEGALY [None]
  - HYPERTENSION [None]
  - INFUSION RELATED REACTION [None]
  - IRRITABILITY [None]
  - LUNG INFILTRATION [None]
  - PH BODY FLUID DECREASED [None]
  - PNEUMONIA [None]
  - RESPIRATORY ARREST [None]
  - RESPIRATORY DISTRESS [None]
  - TACHYCARDIA [None]
  - TRANSAMINASES INCREASED [None]
  - WHITE BLOOD CELL COUNT DECREASED [None]
